FAERS Safety Report 4643114-3 (Version None)
Quarter: 2005Q2

REPORT INFORMATION
  Report Type: 
  Country: None (occurrence: None)
  Receive Date: 20050421
  Receipt Date: 20050408
  Transmission Date: 20051028
  Serious: Yes (Other)
  Sender: FDA-Public Use
  Company Number: 2005057324

PATIENT
  Age: 77 Year
  Sex: Female

DRUGS (7)
  1. BEXTRA [Suspect]
     Indication: RHEUMATOID ARTHRITIS
     Dosage: 20 MG (20 MG, 1 IN 1 D), ORAL
     Route: 048
     Dates: start: 20041201
  2. LEVOFLOXACIN [Suspect]
     Indication: INFECTION
     Dosage: 500 MG (500 MG, 1 IN 1 D), ORAL
     Route: 048
     Dates: start: 20041201
  3. PENTOXIFYLLINE [Concomitant]
  4. LISINOPRIL [Concomitant]
  5. GLIPIZIDE [Concomitant]
  6. INSULIN HUMAN INJECTION, ISOPHANE (INSULIN HUMAN INJECTION, ISOPHANE) [Concomitant]
  7. HYDROXYCHLOROQUINE PHOSPHATE (HYDROXYCHLOROOQUINE PHOSPHATE) [Concomitant]

REACTIONS (5)
  - DRUG HYPERSENSITIVITY [None]
  - IMPAIRED HEALING [None]
  - RASH [None]
  - SCAB [None]
  - SKIN ULCER [None]
